FAERS Safety Report 21004798 (Version 3)
Quarter: 2022Q3

REPORT INFORMATION
  Report Type: Spontaneous
  Country: TH (occurrence: TH)
  Receive Date: 20220624
  Receipt Date: 20220630
  Transmission Date: 20221027
  Serious: Yes (Other)
  Sender: FDA-Public Use
  Company Number: TH-NOVARTISPH-NVSC2022TH140864

PATIENT
  Age: 60 Year
  Sex: Male

DRUGS (17)
  1. SACUBITRIL\VALSARTAN [Suspect]
     Active Substance: SACUBITRIL\VALSARTAN
     Indication: Product used for unknown indication
     Dosage: UNK, BID (100 MG A QUARTER OF TABLET, AFTER MEAL IMMEDIATELY, TWICE DAILY AFTER BREAKFAST AND DINNER
     Route: 048
     Dates: start: 20201007
  2. SACUBITRIL\VALSARTAN [Suspect]
     Active Substance: SACUBITRIL\VALSARTAN
     Dosage: 2 DOSAGE FORM, BID ( 100 MG 2 TABLETS, AFTER MEAL IMMEDIATELY, TWICE DAILY AFTER BREAKFAST AND DINNE
     Route: 048
     Dates: start: 20220511
  3. BISOPROLOL [Concomitant]
     Active Substance: BISOPROLOL
     Indication: Product used for unknown indication
     Dosage: 0.5 DOSAGE FORM, QD
     Route: 048
  4. BISOPROLOL [Concomitant]
     Active Substance: BISOPROLOL
     Dosage: 1 DOSAGE FORM, QD (AFTER BREAKFAST)
     Route: 048
     Dates: start: 20201007
  5. BISOPROLOL [Concomitant]
     Active Substance: BISOPROLOL
     Dosage: 1 DOSAGE FORM, QD (AFTER BREAKFAST)
     Route: 048
     Dates: start: 20220511
  6. TICAGRELOR [Concomitant]
     Active Substance: TICAGRELOR
     Indication: Product used for unknown indication
     Dosage: 1 DOSAGE FORM, BID (AFTER BREAKFAST AND DINNER)
     Route: 048
  7. ATORVASTATIN [Concomitant]
     Active Substance: ATORVASTATIN
     Indication: Product used for unknown indication
     Dosage: 2 DOSAGE FORM, QD (AFTER DINNER)
     Route: 048
  8. ATORVASTATIN [Concomitant]
     Active Substance: ATORVASTATIN
     Dosage: 2 DOSAGE FORM, QD (AFTER DINNER)
     Route: 048
     Dates: start: 20220511
  9. METFORMIN HYDROCHLORIDE [Concomitant]
     Active Substance: METFORMIN HYDROCHLORIDE
     Indication: Product used for unknown indication
     Dosage: 1 DOSAGE FORM, QD (AFTER BREAKFAST)
     Route: 048
  10. METFORMIN HYDROCHLORIDE [Concomitant]
     Active Substance: METFORMIN HYDROCHLORIDE
     Dosage: 1 DOSAGE FORM, QD (AFTER BREAKFAST)
     Route: 048
     Dates: start: 20220511
  11. EMPAGLIFLOZIN [Concomitant]
     Active Substance: EMPAGLIFLOZIN
     Indication: Product used for unknown indication
     Dosage: 1 DOSAGE FORM, QD (AT THE MORNING)
     Route: 048
  12. EMPAGLIFLOZIN [Concomitant]
     Active Substance: EMPAGLIFLOZIN
     Dosage: 1 DOSAGE FORM, QD (AT THE MORNING)
     Route: 048
     Dates: start: 20220511
  13. ISOSORBIDE DINITRATE [Concomitant]
     Active Substance: ISOSORBIDE DINITRATE
     Indication: Cardiac disorder
     Dosage: 1 DOSAGE FORM, QD (BEFORE BREAKFAST)
     Route: 048
  14. VITAMIN B COMPLEX [Concomitant]
     Active Substance: CYANOCOBALAMIN\DEXPANTHENOL\NIACINAMIDE\PYRIDOXINE HYDROCHLORIDE\RIBOFLAVIN 5^-PHOSPHATE SODIUM\THIA
     Indication: Product used for unknown indication
     Dosage: 1 DOSAGE FORM, BID (AFTER BREAKFAST AND DINNER)
     Route: 048
  15. VITAMIN B COMPLEX [Concomitant]
     Active Substance: CYANOCOBALAMIN\DEXPANTHENOL\NIACINAMIDE\PYRIDOXINE HYDROCHLORIDE\RIBOFLAVIN 5^-PHOSPHATE SODIUM\THIA
     Dosage: 1 DOSAGE FORM, BID (AFTER BREAKFAST AND DINNER)
     Route: 048
     Dates: start: 20220511
  16. ASPIRIN [Concomitant]
     Active Substance: ASPIRIN
     Indication: Product used for unknown indication
     Dosage: 1 DOSAGE FORM, QD
     Route: 048
  17. CLOPIDOGREL [Concomitant]
     Active Substance: CLOPIDOGREL BISULFATE
     Indication: Product used for unknown indication
     Dosage: 8 DOSAGE FORM (IMMEDIATELY AFTER BREAKFAST)
     Route: 048

REACTIONS (4)
  - Hyperkalaemia [Unknown]
  - N-terminal prohormone brain natriuretic peptide increased [Unknown]
  - Product use issue [Unknown]
  - Wrong technique in product usage process [Unknown]
